FAERS Safety Report 4675667-3 (Version None)
Quarter: 2005Q2

REPORT INFORMATION
  Report Type: 
  Country: None (occurrence: None)
  Receive Date: 20050527
  Receipt Date: 20050517
  Transmission Date: 20051028
  Serious: Yes (Other)
  Sender: FDA-Public Use
  Company Number: PHBS2005ES06890

PATIENT
  Sex: Female

DRUGS (2)
  1. VISUDYNE [Suspect]
     Indication: MACULAR DEGENERATION
  2. SANDOSTATIN LAR [Suspect]
     Indication: METASTASES TO LIVER
     Dosage: 20 MG, UNK

REACTIONS (1)
  - VISUAL ACUITY REDUCED [None]
